FAERS Safety Report 8500675-1 (Version None)
Quarter: 2012Q3

REPORT INFORMATION
  Report Type: 
  Country: None (occurrence: None)
  Receive Date: 20120710
  Receipt Date: 20120703
  Transmission Date: 20120928
  Serious: Yes (Other)
  Sender: FDA-Public Use
  Company Number: AU-ROCHE-1085149

PATIENT
  Age: 55 Year
  Sex: Male

DRUGS (4)
  1. OXALIPLATIN [Concomitant]
  2. AVASTIN [Suspect]
     Indication: COLORECTAL CANCER METASTATIC
  3. FLUOROURACIL [Concomitant]
  4. FLUOROURACIL [Concomitant]

REACTIONS (2)
  - DISEASE PROGRESSION [None]
  - GASTROINTESTINAL TOXICITY [None]
